FAERS Safety Report 9444112 (Version 1)
Quarter: 2013Q3

REPORT INFORMATION
  Report Type: Spontaneous
  Country: US (occurrence: US)
  Receive Date: 20130807
  Receipt Date: 20130807
  Transmission Date: 20140515
  Serious: Yes (Other)
  Sender: FDA-Public Use
  Company Number: US-ASTRAZENECA-2013SE58355

PATIENT
  Age: 63 Year
  Sex: Male

DRUGS (1)
  1. LISINOPRIL [Suspect]
     Dosage: TWICE DAILY
     Route: 048

REACTIONS (5)
  - Renal impairment [Unknown]
  - Neuropathy peripheral [Unknown]
  - Back disorder [Unknown]
  - Dry mouth [Unknown]
  - Intentional drug misuse [Unknown]
